FAERS Safety Report 9911197 (Version 1)
Quarter: 2014Q1

REPORT INFORMATION
  Report Type: Other
  Country: US (occurrence: US)
  Receive Date: 20140219
  Receipt Date: 20140219
  Transmission Date: 20141002
  Serious: Yes (Hospitalization)
  Sender: FDA-Public Use
  Company Number: US-BRISTOL-MYERS SQUIBB COMPANY-20217840

PATIENT
  Age: 65 Year
  Sex: Male
  Weight: 53.6 kg

DRUGS (15)
  1. ASCORBIC ACID [Suspect]
  2. WARFARIN SODIUM [Interacting]
     Indication: ANTICOAGULANT THERAPY
     Dosage: D2:8MG,D3:10MG,D4:12MG,D5:15MG,D8:20MG,D9:15MG,D12:3MG?DAILY:3.5MG
     Route: 048
  3. AMLODIPINE [Concomitant]
  4. ASPIRIN [Concomitant]
  5. CARVEDILOL [Concomitant]
  6. ESOMEPRAZOLE [Concomitant]
  7. FUROSEMIDE [Concomitant]
  8. LORAZEPAM [Concomitant]
  9. LOSARTAN [Concomitant]
  10. MAGNESIUM [Concomitant]
  11. TRANSDERMAL NICOTINE [Concomitant]
     Route: 062
  12. SIMVASTATIN [Concomitant]
  13. TIOTROPIUM BROMIDE [Concomitant]
     Route: 055
  14. VITAMIN D [Concomitant]
     Dosage: 1 DF: 400 UNITS.
  15. ENOXAPARIN SODIUM [Concomitant]
     Indication: ANTICOAGULANT THERAPY
     Dosage: 1 DF:60 UNITS, 50 UNITS NOS

REACTIONS (2)
  - Therapeutic response decreased [Recovered/Resolved]
  - Drug interaction [Unknown]
